FAERS Safety Report 18052712 (Version 2)
Quarter: 2025Q2

REPORT INFORMATION
  Report Type: Spontaneous
  Country: DE (occurrence: DE)
  Receive Date: 20200722
  Receipt Date: 20250617
  Transmission Date: 20250717
  Serious: Yes (Other)
  Sender: AUROBINDO
  Company Number: DE-BIOGEN-2020BI00892463

PATIENT
  Age: 65 Year
  Sex: Male

DRUGS (8)
  1. RAMIPRIL [Suspect]
     Active Substance: RAMIPRIL
     Indication: Hypertension
     Route: 065
  2. AVONEX [Suspect]
     Active Substance: INTERFERON BETA-1A
     Indication: COVID-19
     Route: 065
  3. RITONAVIR [Suspect]
     Active Substance: RITONAVIR
     Indication: COVID-19
     Route: 065
  4. LOPINAVIR [Suspect]
     Active Substance: LOPINAVIR
     Indication: COVID-19
     Route: 065
  5. PIPERACILLIN AND TAZOBACTAM [Concomitant]
     Active Substance: PIPERACILLIN SODIUM\TAZOBACTAM SODIUM
     Indication: COVID-19
     Route: 065
  6. AZITHROMYCIN [Concomitant]
     Active Substance: AZITHROMYCIN
     Indication: COVID-19
     Route: 065
  7. ACETAMINOPHEN [Concomitant]
     Active Substance: ACETAMINOPHEN
     Indication: COVID-19
     Dosage: 1 GRAM, TWO TIMES A DAY
     Route: 065
  8. HYDROCHLOROTHIAZIDE [Concomitant]
     Active Substance: HYDROCHLOROTHIAZIDE
     Indication: Hypertension
     Route: 065

REACTIONS (7)
  - Multiple organ dysfunction syndrome [Unknown]
  - Hepatic failure [Unknown]
  - Acute respiratory distress syndrome [Unknown]
  - Renal failure [Unknown]
  - Coagulopathy [Unknown]
  - Drug ineffective [Unknown]
  - Off label use [Recovered/Resolved]
